FAERS Safety Report 6040116-X (Version None)
Quarter: 2009Q1

REPORT INFORMATION
  Report Type: 
  Country: None (occurrence: None)
  Receive Date: 20090116
  Receipt Date: 20071214
  Transmission Date: 20090719
  Serious: No
  Sender: FDA-Public Use
  Company Number: US-BRISTOL-MYERS SQUIBB COMPANY-14015432

PATIENT
  Sex: Male

DRUGS (1)
  1. ABILIFY [Suspect]

REACTIONS (4)
  - ERYTHEMA [None]
  - FEELING JITTERY [None]
  - HEART RATE INCREASED [None]
  - PSYCHIATRIC SYMPTOM [None]
